FAERS Safety Report 5277601-4 (Version None)
Quarter: 2007Q1

REPORT INFORMATION
  Report Type: 
  Country: None (occurrence: None)
  Receive Date: 20070327
  Receipt Date: 20070319
  Transmission Date: 20070707
  Serious: Yes (Hospitalization)
  Sender: FDA-Public Use
  Company Number: US-SANOFI-SYNTHELABO-F03200700051

PATIENT
  Sex: Female
  Weight: 55 kg

DRUGS (6)
  1. RITALIN [Concomitant]
     Dosage: UNK
     Route: 048
  2. ATIVAN [Concomitant]
     Dosage: UNK
     Route: 048
  3. CYMBALTA [Concomitant]
     Dosage: UNK
     Route: 048
  4. BEVACIZUMAB [Suspect]
     Indication: GALLBLADDER CANCER
     Route: 042
     Dates: start: 20070207, end: 20070207
  5. OXALIPLATIN [Suspect]
     Indication: GALLBLADDER CANCER
     Route: 042
     Dates: start: 20070207, end: 20070207
  6. GEMCITABINE [Suspect]
     Indication: GALLBLADDER CANCER
     Route: 042
     Dates: start: 20070207, end: 20070207

REACTIONS (1)
  - DELIRIUM [None]
